FAERS Safety Report 18761544 (Version 2)
Quarter: 2021Q1

REPORT INFORMATION
  Report Type: Spontaneous
  Country: US (occurrence: US)
  Receive Date: 20210120
  Receipt Date: 20210329
  Transmission Date: 20210419
  Serious: No
  Sender: FDA-Public Use
  Company Number: US-KYOWAKIRIN-2021BKK000716

PATIENT

DRUGS (1)
  1. NOURIANZ [Suspect]
     Active Substance: ISTRADEFYLLINE
     Indication: PARKINSON^S DISEASE
     Dosage: 40 MG DAILY
     Route: 048
     Dates: start: 20200409

REACTIONS (4)
  - Abnormal dreams [Unknown]
  - Eructation [Unknown]
  - Flatulence [Unknown]
  - Decreased appetite [Unknown]
